FAERS Safety Report 16722831 (Version 1)
Quarter: 2019Q3

REPORT INFORMATION
  Report Type: Spontaneous
  Country: IT (occurrence: IT)
  Receive Date: 20190821
  Receipt Date: 20190821
  Transmission Date: 20191005
  Serious: Yes (Other)
  Sender: FDA-Public Use
  Company Number: IT-MICRO LABS LIMITED-ML2019-01967

PATIENT
  Age: 87 Year
  Sex: Female

DRUGS (4)
  1. PANTOPRAZOLE [Interacting]
     Active Substance: PANTOPRAZOLE
  2. CELECOXIB. [Interacting]
     Active Substance: CELECOXIB
  3. WARFARIN [Interacting]
     Active Substance: WARFARIN
     Indication: PROPHYLAXIS
  4. TRAMADOL/PARACETAMOL [Suspect]
     Active Substance: ACETAMINOPHEN\TRAMADOL

REACTIONS (3)
  - Labelled drug-drug interaction medication error [Unknown]
  - Haematemesis [Recovering/Resolving]
  - Melaena [Recovering/Resolving]
